FAERS Safety Report 6365496-7 (Version None)
Quarter: 2009Q3

REPORT INFORMATION
  Report Type: 
  Country: None (occurrence: None)
  Receive Date: 20090919
  Receipt Date: 20090818
  Transmission Date: 20100115
  Serious: No
  Sender: FDA-Public Use
  Company Number: US-ABBOTT-09P-163-0592588-00

PATIENT
  Sex: Female
  Weight: 79.45 kg

DRUGS (3)
  1. HUMIRA [Suspect]
     Indication: PSORIATIC ARTHROPATHY
     Dates: start: 20070305
  2. BLOOD PRESSURE PILLS [Concomitant]
     Indication: DRUG USE FOR UNKNOWN INDICATION
  3. CHOLESTEROL PILLS [Concomitant]
     Indication: DRUG USE FOR UNKNOWN INDICATION

REACTIONS (3)
  - COUGH [None]
  - OROPHARYNGEAL PAIN [None]
  - SINUS CONGESTION [None]
